FAERS Safety Report 9189969 (Version 1)
Quarter: 2013Q1

REPORT INFORMATION
  Report Type: Spontaneous
  Country: US (occurrence: None)
  Receive Date: 20120703
  Receipt Date: 20120703
  Transmission Date: 20140127
  Serious: Yes (Other)
  Sender: FDA-Public Use
  Company Number: PHEH2012US011034

PATIENT
  Sex: Female
  Weight: 111.1 kg

DRUGS (16)
  1. GILENYA (FTY) CAPSULE, 0.5 MG [Suspect]
     Route: 048
     Dates: end: 20120522
  2. AZELASTINE (AZELASTINE) [Concomitant]
  3. LASIX (FUROSEMIDE) [Suspect]
  4. SYNTHROID (LEVOTHYOXINE SODIUM) [Concomitant]
  5. FLUOCINONIDE (FLUOCINONIDE) [Concomitant]
  6. ATENOLOL (ATENOLOL) TABLET [Concomitant]
  7. ASPIRIN (ACETYLSALICYLIC ACID) [Concomitant]
  8. WELLBUTRIN (BUPROPION HYDROCHLORIDE) TABLET [Concomitant]
  9. NEXIUM (ESOMEPRAZOLE MAGNESSIUM) CAPSULE [Concomitant]
  10. CRESTOR (ROSUVASTATIN CALCIUM) TABLET [Concomitant]
  11. CELEXA (CITALOPRAM HYDROBROMIDE) TABLET [Concomitant]
  12. POTASSIUM (POTASSIUM) TABLET [Concomitant]
  13. FISH OIL (FISH OIL) CAPSULE [Concomitant]
  14. LUNESTA (ESZOPICLONE) TABLET [Concomitant]
  15. MULTIVITAMIN (VITAMINS NOS) CAPSULE [Concomitant]
  16. BEPOTASSIUM BESILATE (BEPOTASTINE BESILATE) [Concomitant]

REACTIONS (1)
  - Macular oedema [None]
